FAERS Safety Report 9481089 (Version 2)
Quarter: 2013Q3

REPORT INFORMATION
  Report Type: Spontaneous
  Country: US (occurrence: US)
  Receive Date: 20130828
  Receipt Date: 20130828
  Transmission Date: 20140515
  Serious: Yes (Hospitalization)
  Sender: FDA-Public Use
  Company Number: US-AMGEN-KDL151832

PATIENT
  Age: 88 Year
  Sex: Female

DRUGS (4)
  1. ENBREL [Suspect]
     Indication: PSORIATIC ARTHROPATHY
     Dosage: 50 MG, QWK
     Route: 058
     Dates: start: 20050823, end: 20050916
  2. METHOTREXATE [Concomitant]
     Dosage: 10 MG, QWK
     Dates: start: 20050701
  3. VICODIN [Concomitant]
  4. METHADONE [Concomitant]

REACTIONS (3)
  - Disorientation [Recovered/Resolved]
  - White blood cell count abnormal [Unknown]
  - Fall [Unknown]
